FAERS Safety Report 7656551-X (Version None)
Quarter: 2011Q3

REPORT INFORMATION
  Report Type: 
  Country: None (occurrence: None)
  Receive Date: 20110804
  Receipt Date: 20110119
  Transmission Date: 20111222
  Serious: No
  Sender: FDA-Public Use
  Company Number: US-BAUSCH-2011BL000334

PATIENT
  Age: 40 Year
  Sex: Female

DRUGS (1)
  1. OPCON-A [Suspect]
     Indication: MULTIPLE ALLERGIES
     Route: 047
     Dates: start: 20101108, end: 20101108

REACTIONS (2)
  - INSTILLATION SITE PAIN [None]
  - DRUG INEFFECTIVE [None]
